FAERS Safety Report 17592336 (Version 2)
Quarter: 2020Q2

REPORT INFORMATION
  Report Type: Spontaneous
  Country: US (occurrence: US)
  Receive Date: 20200327
  Receipt Date: 20200415
  Transmission Date: 20200713
  Serious: Yes (Life-Threatening, Other)
  Sender: FDA-Public Use
  Company Number: US-PFIZER INC-2020129695

PATIENT
  Age: 13 Year
  Sex: Male
  Weight: 45 kg

DRUGS (5)
  1. XYLOCAINE [Suspect]
     Active Substance: LIDOCAINE HYDROCHLORIDE
     Indication: LOCAL ANAESTHESIA
     Dosage: 20 MG/KG, UNK
     Route: 042
  2. PENTOBARBITAL. [Concomitant]
     Active Substance: PENTOBARBITAL
     Indication: ANAESTHETIC PREMEDICATION
     Dosage: 75 MG, UNK
  3. SALINE [SODIUM CHLORIDE] [Concomitant]
     Active Substance: SODIUM CHLORIDE
     Indication: SYNOVIAL CYST REMOVAL
     Dosage: 3 ML, UNK
  4. XYLOCAINE [Suspect]
     Active Substance: LIDOCAINE HYDROCHLORIDE
     Dosage: 120 ML, SINGLE (0.75 PERCENT)
     Route: 042
  5. ATROPINE. [Concomitant]
     Active Substance: ATROPINE
     Indication: ANAESTHETIC PREMEDICATION
     Dosage: 0.3 MG, UNK

REACTIONS (6)
  - Coma [Recovered/Resolved]
  - Seizure [Recovered/Resolved]
  - Respiratory disorder [Recovered/Resolved]
  - Toxicity to various agents [Recovered/Resolved]
  - Somnolence [Recovered/Resolved]
  - Hypertension [Recovered/Resolved]
